FAERS Safety Report 6516822-7 (Version None)
Quarter: 2009Q4

REPORT INFORMATION
  Report Type: 
  Country: None (occurrence: None)
  Receive Date: 20091223
  Receipt Date: 20091215
  Transmission Date: 20100525
  Serious: Yes (Other)
  Sender: FDA-Public Use
  Company Number: PHHO2009FR15504

PATIENT
  Sex: Female

DRUGS (6)
  1. AFINITOR [Suspect]
     Indication: ENDOMETRIAL CANCER METASTATIC
     Dosage: 5 MG
     Dates: start: 20080717
  2. TAHOR [Concomitant]
     Dosage: 20 MG
  3. LEVOTHYROXINE SODIUM [Concomitant]
     Dosage: 100 MG
  4. LOGIMAX [Concomitant]
  5. DOLIPRANE [Concomitant]
  6. DUPHALAC [Concomitant]

REACTIONS (2)
  - CATHETER PLACEMENT [None]
  - THROMBOSIS IN DEVICE [None]
